FAERS Safety Report 7919121-1 (Version None)
Quarter: 2011Q4

REPORT INFORMATION
  Report Type: 
  Country: None (occurrence: None)
  Receive Date: 20111116
  Receipt Date: 20100920
  Transmission Date: 20120403
  Serious: Yes (Other)
  Sender: FDA-Public Use
  Company Number: PHHY2010DK092625

PATIENT

DRUGS (1)
  1. FAMCICLOVIR [Suspect]

REACTIONS (2)
  - CONGENITAL ANOMALY [None]
  - FOETAL EXPOSURE DURING PREGNANCY [None]
